FAERS Safety Report 11595640 (Version 1)
Quarter: 2015Q4

REPORT INFORMATION
  Report Type: Spontaneous
  Country: FR (occurrence: FR)
  Receive Date: 20151006
  Receipt Date: 20151006
  Transmission Date: 20160304
  Serious: Yes (Hospitalization)
  Sender: FDA-Public Use
  Company Number: FR-ACCORD-034146

PATIENT
  Age: 67 Year
  Sex: Female

DRUGS (14)
  1. MABTHERA [Suspect]
     Active Substance: RITUXIMAB
     Indication: PRODUCT USED FOR UNKNOWN INDICATION
     Dosage: 500MG, SOLUTION FOR INFUSION?375MG/M2 ROUNDED TO 500MG
     Route: 042
  2. PRIMPERAN [Suspect]
     Active Substance: METOCLOPRAMIDE HYDROCHLORIDE
     Indication: PROPHYLAXIS OF NAUSEA AND VOMITING
     Route: 048
  3. ZARZIO [Concomitant]
     Active Substance: FILGRASTIM
     Dosage: 30 PER DAY FOR 5 DAYS
  4. BLEOMYCINE BELLON [Suspect]
     Active Substance: BLEOMYCIN SULFATE
     Indication: PRODUCT USED FOR UNKNOWN INDICATION
     Dosage: 15MG, POWDER FOR INJECTION
     Route: 042
  5. ADRIBLASTINE [Suspect]
     Active Substance: DOXORUBICIN
     Indication: PRODUCT USED FOR UNKNOWN INDICATION
     Dosage: 25 MG/M2
     Route: 042
  6. EMEND [Suspect]
     Active Substance: APREPITANT
     Indication: PROPHYLAXIS OF NAUSEA AND VOMITING
     Route: 048
  7. METHYLPREDNISOLONE MYLAN [Suspect]
     Active Substance: METHYLPREDNISOLONE
     Indication: PREMEDICATION
     Route: 042
  8. PILOCARPINE. [Concomitant]
     Active Substance: PILOCARPINE
     Dosage: 3 MG
  9. DACARBAZINE MEDAC [Suspect]
     Active Substance: DACARBAZINE
     Indication: PRODUCT USED FOR UNKNOWN INDICATION
     Dosage: AT 375MG/M2 I.E. 540MG?500 MG
     Route: 042
  10. POLARAMINE [Suspect]
     Active Substance: DEXCHLORPHENIRAMINE MALEATE
     Indication: PREMEDICATION
     Dosage: 5MG /1 ML, SOLUTION INJECTABLE
     Route: 042
  11. VALACICLOVIR [Concomitant]
     Active Substance: VALACYCLOVIR HYDROCHLORIDE
     Dosage: ON MORNING AND IN THE EVENING
  12. ONDANSETRON ACCORD [Suspect]
     Active Substance: ONDANSETRON
     Indication: PROPHYLAXIS OF NAUSEA AND VOMITING
  13. PARACETAMOL [Suspect]
     Active Substance: ACETAMINOPHEN
     Indication: PREMEDICATION
  14. VELBE [Suspect]
     Active Substance: VINBLASTINE SULFATE
     Indication: PRODUCT USED FOR UNKNOWN INDICATION
     Dosage: 10MG,?6 MG/M2 I.E.8.6MG
     Route: 042

REACTIONS (2)
  - Interstitial lung disease [Recovering/Resolving]
  - Condition aggravated [Recovering/Resolving]
